FAERS Safety Report 22074297 (Version 3)
Quarter: 2023Q2

REPORT INFORMATION
  Report Type: Spontaneous
  Country: US (occurrence: US)
  Receive Date: 20230308
  Receipt Date: 20230420
  Transmission Date: 20230722
  Serious: No
  Sender: FDA-Public Use
  Company Number: US-PFIZER INC-202300025711

PATIENT
  Age: 78 Year
  Sex: Female
  Weight: 61.23 kg

DRUGS (3)
  1. IBRANCE [Suspect]
     Active Substance: PALBOCICLIB
     Dosage: 125 MG, CYCLIC (1X/DAY, AT 11:15 AM EVERY FOR 3 WEEKS)
  2. GABAPENTIN [Concomitant]
     Active Substance: GABAPENTIN
  3. IBUPROFEN [Concomitant]
     Active Substance: IBUPROFEN
     Indication: Pain

REACTIONS (6)
  - Confusional state [Unknown]
  - Fatigue [Unknown]
  - Panic reaction [Unknown]
  - Illness [Unknown]
  - Vomiting [Unknown]
  - Diarrhoea [Unknown]
